FAERS Safety Report 7925444-2 (Version None)
Quarter: 2011Q4

REPORT INFORMATION
  Report Type: 
  Country: None (occurrence: None)
  Receive Date: 20111118
  Receipt Date: 20110406
  Transmission Date: 20120403
  Serious: No
  Sender: FDA-Public Use
  Company Number: US-AMGEN-USASP2011015481

PATIENT
  Age: 44 Year
  Sex: Female
  Weight: 53.515 kg

DRUGS (2)
  1. METHOTREXATE [Concomitant]
     Dosage: 6 MG, UNK
     Dates: start: 20101201
  2. ENBREL [Suspect]
     Indication: PSORIATIC ARTHROPATHY
     Dosage: 50 MG, QWK
     Dates: start: 20110321

REACTIONS (1)
  - DIZZINESS [None]
